FAERS Safety Report 13782578 (Version 2)
Quarter: 2017Q3

REPORT INFORMATION
  Report Type: Spontaneous
  Country: US (occurrence: US)
  Receive Date: 20170724
  Receipt Date: 20170809
  Transmission Date: 20171127
  Serious: Yes (Death)
  Sender: FDA-Public Use
  Company Number: US-SA-2017SA126189

PATIENT
  Age: 58 Year
  Sex: Male
  Weight: 90.5 kg

DRUGS (2)
  1. RENVELA [Suspect]
     Active Substance: SEVELAMER CARBONATE
     Indication: HYPERPARATHYROIDISM SECONDARY
     Route: 048
     Dates: start: 20170628, end: 20170702
  2. RENVELA [Suspect]
     Active Substance: SEVELAMER CARBONATE
     Indication: BLOOD PHOSPHORUS INCREASED
     Route: 048
     Dates: start: 20170628, end: 20170702

REACTIONS (3)
  - Cardiac arrest [Fatal]
  - Product use issue [Unknown]
  - Product use in unapproved indication [Unknown]

NARRATIVE: CASE EVENT DATE: 20170702
